FAERS Safety Report 22019700 (Version 2)
Quarter: 2023Q1

REPORT INFORMATION
  Report Type: Report from Study
  Country: GR (occurrence: GR)
  Receive Date: 20230222
  Receipt Date: 20230227
  Transmission Date: 20230417
  Serious: Yes (Hospitalization)
  Sender: FDA-Public Use
  Company Number: GR-ABBVIE-4314417

PATIENT
  Sex: Female

DRUGS (2)
  1. CARBIDOPA\LEVODOPA [Suspect]
     Active Substance: CARBIDOPA\LEVODOPA
     Indication: Parkinson^s disease
     Dosage: MORNING DOSE: 12.9 ML, CONTINUOUS RATE: 4.5 ML/H, EXTRA DOSE: 1.7 ML
     Route: 050
     Dates: start: 20160329
  2. CARBIDOPA\LEVODOPA [Suspect]
     Active Substance: CARBIDOPA\LEVODOPA

REACTIONS (6)
  - Red blood cell count decreased [Recovering/Resolving]
  - Stoma site erythema [Not Recovered/Not Resolved]
  - Haematuria [Recovering/Resolving]
  - Urinary tract infection [Not Recovered/Not Resolved]
  - Platelet count decreased [Recovering/Resolving]
  - Abdominal pain [Not Recovered/Not Resolved]
